FAERS Safety Report 18169062 (Version 2)
Quarter: 2022Q2

REPORT INFORMATION
  Report Type: Spontaneous
  Country: US (occurrence: US)
  Receive Date: 20200819
  Receipt Date: 20220426
  Transmission Date: 20220721
  Serious: No
  Sender: FDA-Public Use
  Company Number: US-PFIZER INC-2020319245

PATIENT
  Age: 71 Year
  Sex: Female

DRUGS (1)
  1. XANAX [Suspect]
     Active Substance: ALPRAZOLAM
     Dosage: 1.5 DF, DAILY PRN

REACTIONS (3)
  - Memory impairment [Unknown]
  - Feeling abnormal [Unknown]
  - Irritability [Unknown]
